FAERS Safety Report 5668080-3 (Version None)
Quarter: 2008Q1

REPORT INFORMATION
  Report Type: 
  Country: None (occurrence: None)
  Receive Date: 20080315
  Receipt Date: 20080214
  Transmission Date: 20080703
  Serious: No
  Sender: FDA-Public Use
  Company Number: US-ABBOTT-08P-163-0438509-00

PATIENT
  Sex: Female
  Weight: 101 kg

DRUGS (3)
  1. HUMIRA [Suspect]
     Indication: PSORIASIS
     Route: 058
     Dates: start: 20080204, end: 20080218
  2. HUMIRA [Suspect]
     Indication: PSORIATIC ARTHROPATHY
  3. VICODIN [Concomitant]
     Indication: DRUG USE FOR UNKNOWN INDICATION

REACTIONS (3)
  - COUGH [None]
  - HEADACHE [None]
  - INFLUENZA [None]
